FAERS Safety Report 25917711 (Version 1)
Quarter: 2025Q4

REPORT INFORMATION
  Report Type: Spontaneous
  Country: GB (occurrence: GB)
  Receive Date: 20251014
  Receipt Date: 20251014
  Transmission Date: 20260117
  Serious: Yes (Other)
  Sender: AMGEN
  Company Number: GB-AMGEN-GBRSP2025188779

PATIENT
  Age: 22 Year
  Sex: Male
  Weight: 83 kg

DRUGS (1)
  1. ARANESP [Suspect]
     Active Substance: DARBEPOETIN ALFA
     Indication: Anaemia
     Dosage: 240 MICROGRAM, QWK
     Route: 042
     Dates: start: 202306

REACTIONS (2)
  - Dialysis [Unknown]
  - Drug ineffective [Unknown]
